FAERS Safety Report 16421661 (Version 1)
Quarter: 2019Q2

REPORT INFORMATION
  Report Type: Spontaneous
  Country: US (occurrence: US)
  Receive Date: 20190612
  Receipt Date: 20190612
  Transmission Date: 20190711
  Serious: Yes (Other)
  Sender: FDA-Public Use
  Company Number: US-REGENERON PHARMACEUTICALS, INC.-2019-35459

PATIENT

DRUGS (24)
  1. OMEPRAZOLE                         /00661202/ [Concomitant]
     Active Substance: OMEPRAZOLE SODIUM
     Indication: DYSPEPSIA
     Dosage: 40 MG, UNK
  2. OXYBUTYNIN CHLORIDE. [Concomitant]
     Active Substance: OXYBUTYNIN CHLORIDE
     Indication: INCONTINENCE
     Dosage: 5 MG, UNK
  3. STOOL SOFTENER (DOCUSATE) [Concomitant]
     Active Substance: DOCUSATE
     Indication: PRODUCT USED FOR UNKNOWN INDICATION
     Dosage: UNK
  4. IODINE                             /00080001/ [Suspect]
     Active Substance: POVIDONE-IODINE
     Dosage: IN THE EYE PRIOR TO EYLEA INJECTION
     Dates: start: 20190529
  5. FLUTICASONE PROPIONATE. [Concomitant]
     Active Substance: FLUTICASONE PROPIONATE
     Indication: ALLERGIC SINUSITIS
     Dosage: 50 ?G SPRAY IN THE NOSTRIL USED OCCASIONALLY
  6. MECLIZINE [Concomitant]
     Active Substance: MECLIZINE HYDROCHLORIDE
     Indication: MENIERE^S DISEASE
     Dosage: 25 MG, PRESCRIPTION IS WRITTEN AS TAKE 1 TABLET 3 TIMES DAILY BUT PATIENT USES AS NEEDED
  7. METOPROLOL TARTRATE. [Concomitant]
     Active Substance: METOPROLOL TARTRATE
     Indication: PRODUCT USED FOR UNKNOWN INDICATION
     Dosage: 25 MG, PRESCRIPTION IS WRITTEN AS TAKE 1/2 TABLET IN THE MORNING AND 1/2 TABLET AT NIGHT BUT PATIENT
  8. ROPINIROLE. [Concomitant]
     Active Substance: ROPINIROLE
     Indication: MUSCLE SPASMS
     Dosage: 0.25 MG, UNK
  9. YEAST [Concomitant]
     Active Substance: YEAST
     Indication: OSTEOPOROSIS
  10. EYLEA [Suspect]
     Active Substance: AFLIBERCEPT
     Indication: NEOVASCULAR AGE-RELATED MACULAR DEGENERATION
     Dosage: IN THE LEFT EYE EVERY 4 WEEKS
     Route: 031
     Dates: start: 20190403
  11. LETROZOLE. [Concomitant]
     Active Substance: LETROZOLE
     Indication: NEOPLASM MALIGNANT
     Dosage: 2.5 MG ONE TAB A DAY
  12. SYNTHROID [Concomitant]
     Active Substance: LEVOTHYROXINE SODIUM
     Indication: PRODUCT USED FOR UNKNOWN INDICATION
     Dosage: 125 ?G ONCE A DAY
  13. VITAMIN D3 [Concomitant]
     Active Substance: CHOLECALCIFEROL
     Indication: PRODUCT USED FOR UNKNOWN INDICATION
     Dosage: 2000 UNITS A DAY; USUALLY USES 1000 UNITS IN THE MORNING AND 1000 UNITS AT NIGHT
  14. LUTEIN                             /01638501/ [Concomitant]
     Active Substance: LUTEIN
     Indication: PRODUCT USED FOR UNKNOWN INDICATION
     Dosage: 6 ?G, UNK
     Route: 048
  15. ZEAXANTHIN [Concomitant]
     Active Substance: ZEAXANTHIN
     Indication: PRODUCT USED FOR UNKNOWN INDICATION
     Dosage: UNK
  16. EYLEA [Suspect]
     Active Substance: AFLIBERCEPT
     Dosage: IN THE LEFT EYE EVERY 4 WEEKS
     Route: 031
     Dates: start: 20190501, end: 20190501
  17. MAGNESIUM [Concomitant]
     Active Substance: MAGNESIUM
     Indication: PRODUCT USED FOR UNKNOWN INDICATION
     Dosage: 400 MG IN THE MORNING AND 400 MG AT NIGHT
  18. ELIQUIS [Suspect]
     Active Substance: APIXABAN
     Indication: PRODUCT USED FOR UNKNOWN INDICATION
     Dosage: 5 MG ONCE A DAY
  19. IODINE /00080001/ [Suspect]
     Active Substance: POVIDONE-IODINE
     Indication: PRODUCT USED FOR UNKNOWN INDICATION
     Dosage: IN THE EYE PRIOR TO EYLEA INJECTION
     Dates: start: 20190403
  20. IODINE                             /00080001/ [Suspect]
     Active Substance: POVIDONE-IODINE
     Dosage: IN THE EYE PRIOR TO EYLEA INJECTION
     Dates: start: 20190501
  21. YEAST [Concomitant]
     Active Substance: YEAST
     Indication: ARTHRITIS
     Dosage: UNK
  22. EYLEA [Suspect]
     Active Substance: AFLIBERCEPT
     Dosage: IN THE LEFT EYE EVERY 4 WEEKS
     Route: 031
     Dates: start: 20190529, end: 20190529
  23. FUROSEMIDE. [Concomitant]
     Active Substance: FUROSEMIDE
     Indication: DIURETIC THERAPY
     Dosage: 20 MG, UNK
  24. TUMS                               /00193601/ [Concomitant]
     Active Substance: CALCIUM CARBONATE\MAGNESIUM CARBONATE\MAGNESIUM TRISILICATE
     Indication: DYSPEPSIA
     Dosage: UNK

REACTIONS (15)
  - Eye haemorrhage [Unknown]
  - Injection site bruising [Not Recovered/Not Resolved]
  - Product administration error [Unknown]
  - Eye pain [Not Recovered/Not Resolved]
  - Lacrimation increased [Unknown]
  - Inflammation [Not Recovered/Not Resolved]
  - Neck pain [Unknown]
  - Thrombosis [Unknown]
  - Eye swelling [Unknown]
  - Arthralgia [Unknown]
  - Vision blurred [Unknown]
  - Ocular discomfort [Unknown]
  - Ocular hyperaemia [Not Recovered/Not Resolved]
  - Vitreous floaters [Unknown]
  - Drug ineffective [Unknown]

NARRATIVE: CASE EVENT DATE: 20190403
